FAERS Safety Report 12520922 (Version 1)
Quarter: 2016Q3

REPORT INFORMATION
  Report Type: Spontaneous
  Country: FR (occurrence: FR)
  Receive Date: 20160701
  Receipt Date: 20160701
  Transmission Date: 20161109
  Serious: Yes (Hospitalization, Other)
  Sender: FDA-Public Use
  Company Number: FR-009507513-1606FRA012947

PATIENT
  Sex: Male

DRUGS (13)
  1. TRUVADA [Concomitant]
     Active Substance: EMTRICITABINE\TENOFOVIR DISOPROXIL FUMARATE
     Dosage: UNK, QD
  2. BACTRIM [Concomitant]
     Active Substance: SULFAMETHOXAZOLE\TRIMETHOPRIM
     Dosage: UNK, QD, BACTRIM ADULT
     Route: 042
     Dates: start: 20160411, end: 20160418
  3. PREZISTA [Concomitant]
     Active Substance: DARUNAVIR ETHANOLATE
     Dosage: UNK, BID
  4. BACTRIM [Concomitant]
     Active Substance: SULFAMETHOXAZOLE\TRIMETHOPRIM
     Dosage: 1 DF, QD
     Route: 048
  5. NORVIR [Concomitant]
     Active Substance: RITONAVIR
     Dosage: UNK, BID
  6. ROVALCYTE [Concomitant]
     Active Substance: VALGANCICLOVIR HYDROCHLORIDE
     Dosage: UNK, BID
  7. PLAVIX [Concomitant]
     Active Substance: CLOPIDOGREL BISULFATE
     Dosage: UNK, QD
  8. GRANUDOXY /00055701/ [Suspect]
     Active Substance: DOXYCYCLINE
     Indication: SYPHILIS
     Dosage: 100 MG, QD
     Route: 048
     Dates: start: 20160418, end: 20160428
  9. AZADOSE [Concomitant]
     Active Substance: AZITHROMYCIN ANHYDROUS
     Dosage: UNK
  10. LAROXYL [Suspect]
     Active Substance: AMITRIPTYLINE
     Dosage: 50MG/2ML,QD , STRENGTH 50 MG/2ML
     Route: 042
     Dates: start: 20160416, end: 20160421
  11. NOXAFIL [Suspect]
     Active Substance: POSACONAZOLE
     Indication: OESOPHAGEAL CANDIDIASIS
     Dosage: 10 ML, BID
     Route: 048
     Dates: start: 20160421, end: 20160428
  12. ETRAVIRINE [Concomitant]
     Active Substance: ETRAVIRINE
     Dosage: UNK, BID
  13. PRAVASTATIN. [Concomitant]
     Active Substance: PRAVASTATIN
     Dosage: UNK, QD

REACTIONS (2)
  - Hepatocellular injury [Recovered/Resolved]
  - Rash maculo-papular [Recovered/Resolved]
